FAERS Safety Report 25311054 (Version 2)
Quarter: 2025Q3

REPORT INFORMATION
  Report Type: Spontaneous
  Country: CN (occurrence: CN)
  Receive Date: 20250514
  Receipt Date: 20250916
  Transmission Date: 20251020
  Serious: Yes (Hospitalization)
  Sender: MERCK SHARP & DOHME LLC
  Company Number: CN-SICHUAN KELUN-BIOTECH BIOPHARMACEUTICAL CO. LTD.-2025KB000082

PATIENT
  Age: 61 Year
  Sex: Female
  Weight: 50 kg

DRUGS (1)
  1. SACITUZUMAB GOVITECAN [Suspect]
     Active Substance: SACITUZUMAB GOVITECAN
     Indication: Breast cancer
     Route: 041
     Dates: start: 20250210, end: 20250210

REACTIONS (1)
  - Platelet count decreased [Recovering/Resolving]
